FAERS Safety Report 8995901 (Version 1)
Quarter: 2013Q1

REPORT INFORMATION
  Report Type: Spontaneous
  Country: US (occurrence: US)
  Receive Date: 20130103
  Receipt Date: 20130103
  Transmission Date: 20140127
  Serious: Yes (Other)
  Sender: FDA-Public Use
  Company Number: US-BAYER-2012-136583

PATIENT
  Age: 21 Year
  Sex: Male
  Weight: 59 kg

DRUGS (2)
  1. ALKA-SELTZER PLUS SEVERE SINUS CONGESTION AND COUGH [Suspect]
     Indication: RESPIRATORY TRACT CONGESTION
     Dosage: 2 DF, UNK
     Route: 048
     Dates: start: 20121227
  2. ALKA-SELTZER PLUS SEVERE SINUS CONGESTION AND COUGH [Suspect]
     Indication: COUGH

REACTIONS (1)
  - Epistaxis [Recovered/Resolved]
